FAERS Safety Report 8267282-X (Version None)
Quarter: 2012Q2

REPORT INFORMATION
  Report Type: 
  Country: None (occurrence: None)
  Receive Date: 20120409
  Receipt Date: 20120403
  Transmission Date: 20120825
  Serious: Yes (Other)
  Sender: FDA-Public Use
  Company Number: US-JNJFOC-20120402523

PATIENT
  Age: 8 Year
  Sex: Male

DRUGS (10)
  1. METHYLPHENIDATE [Suspect]
     Indication: POST-TRAUMATIC STRESS DISORDER
     Route: 065
  2. BENZODIAZEPINES NOS [Suspect]
     Indication: PRODUCT USED FOR UNKNOWN INDICATION
     Route: 065
  3. METHYLPHENIDATE [Suspect]
     Indication: ATTENTION DEFICIT/HYPERACTIVITY DISORDER
     Route: 065
  4. DEXTROMETHORPHAN HYDROBROMIDE [Interacting]
     Indication: NASOPHARYNGITIS
     Route: 065
  5. DIPHENHYDRAMINE HCL [Suspect]
     Indication: PRODUCT USED FOR UNKNOWN INDICATION
     Route: 065
  6. CLONIDINE [Suspect]
     Indication: POST-TRAUMATIC STRESS DISORDER
     Route: 065
  7. CITALOPRAM HYDROBROMIDE [Interacting]
     Indication: POST-TRAUMATIC STRESS DISORDER
     Route: 065
  8. CLONIDINE [Suspect]
     Indication: ATTENTION DEFICIT/HYPERACTIVITY DISORDER
     Route: 065
  9. CITALOPRAM HYDROBROMIDE [Interacting]
     Indication: ATTENTION DEFICIT/HYPERACTIVITY DISORDER
     Route: 065
  10. AMPHETAMINES [Suspect]
     Indication: PRODUCT USED FOR UNKNOWN INDICATION
     Route: 065

REACTIONS (2)
  - SEROTONIN SYNDROME [None]
  - DRUG INTERACTION [None]
